FAERS Safety Report 7800482-9 (Version None)
Quarter: 2011Q4

REPORT INFORMATION
  Report Type: 
  Country: None (occurrence: None)
  Receive Date: 20111006
  Receipt Date: 20111005
  Transmission Date: 20120403
  Serious: Yes (Hospitalization)
  Sender: FDA-Public Use
  Company Number: JP-PFIZER INC-2011238055

PATIENT
  Age: 54 Year
  Sex: Female

DRUGS (2)
  1. VARENICLINE TARTRATE [Suspect]
     Dosage: UNK
     Route: 048
     Dates: start: 20110907, end: 20110901
  2. VARENICLINE TARTRATE [Suspect]
     Dosage: 1 MG/DAY
     Route: 048
     Dates: start: 20110901, end: 20110913

REACTIONS (6)
  - VOMITING [None]
  - ABDOMINAL PAIN [None]
  - NAUSEA [None]
  - ABDOMINAL DISTENSION [None]
  - ILEUS [None]
  - SENSE OF OPPRESSION [None]
